APPROVED DRUG PRODUCT: BUTALBITAL AND ACETAMINOPHEN
Active Ingredient: ACETAMINOPHEN; BUTALBITAL
Strength: 325MG;50MG
Dosage Form/Route: TABLET;ORAL
Application: A089568 | Product #001
Applicant: HALSEY DRUG CO INC
Approved: Oct 5, 1988 | RLD: No | RS: No | Type: DISCN